FAERS Safety Report 4846483-4 (Version None)
Quarter: 2005Q4

REPORT INFORMATION
  Report Type: 
  Country: None (occurrence: None)
  Receive Date: 20051202
  Receipt Date: 20051121
  Transmission Date: 20060501
  Serious: No
  Sender: FDA-Public Use
  Company Number: 219486

PATIENT
  Age: 63 Year
  Sex: Male
  Weight: 86 kg

DRUGS (1)
  1. RAPTIVA [Suspect]
     Indication: DERMATITIS
     Dosage: SEE IMAGE, SUBCUTANEOUS
     Route: 058
     Dates: start: 20051025, end: 20051025

REACTIONS (1)
  - ECZEMA [None]
